FAERS Safety Report 21759381 (Version 1)
Quarter: 2022Q4

REPORT INFORMATION
  Report Type: Spontaneous
  Country: US (occurrence: None)
  Receive Date: 20221220
  Receipt Date: 20221220
  Transmission Date: 20230113
  Serious: Yes (Death, Hospitalization)
  Sender: FDA-Public Use
  Company Number: None

PATIENT
  Age: 75 Year
  Sex: Male
  Weight: 40.8 kg

DRUGS (3)
  1. FLUOROURACIL [Suspect]
     Active Substance: FLUOROURACIL
     Dates: end: 20221130
  2. IRINOTECAN HYDROCHLORIDE [Suspect]
     Active Substance: IRINOTECAN HYDROCHLORIDE
     Dates: end: 20221130
  3. LEUCOVORIN CALCIUM [Suspect]
     Active Substance: LEUCOVORIN CALCIUM
     Dates: end: 20221130

REACTIONS (11)
  - Tachycardia [None]
  - Tachypnoea [None]
  - Dyspnoea [None]
  - Pneumonia [None]
  - Thrombosis [None]
  - COVID-19 [None]
  - Acute kidney injury [None]
  - Abdominal pain [None]
  - Pneumonia bacterial [None]
  - Septic shock [None]
  - Blood lactic acid increased [None]

NARRATIVE: CASE EVENT DATE: 20221211
